FAERS Safety Report 9195991 (Version 1)
Quarter: 2013Q1

REPORT INFORMATION
  Report Type: Spontaneous
  Country: FR (occurrence: FR)
  Receive Date: 20130328
  Receipt Date: 20130328
  Transmission Date: 20140127
  Serious: Yes (Life-Threatening)
  Sender: FDA-Public Use
  Company Number: PHHY2013FR029480

PATIENT
  Age: 52 Year
  Sex: Female

DRUGS (3)
  1. ZOMETA [Suspect]
     Indication: PLASMA CELL MYELOMA
     Dosage: 12 COURSES
     Route: 042
  2. REVLIMID [Suspect]
     Indication: PLASMA CELL MYELOMA
     Dosage: 10 MG, QD
     Route: 048
     Dates: start: 20100301, end: 201201
  3. ALKERAN [Suspect]
     Indication: PLASMA CELL MYELOMA
     Dosage: 140 MG, UNK
     Dates: start: 201002

REACTIONS (2)
  - Breast cancer [Not Recovered/Not Resolved]
  - Second primary malignancy [Not Recovered/Not Resolved]
